FAERS Safety Report 7531634-3 (Version None)
Quarter: 2011Q2

REPORT INFORMATION
  Report Type: 
  Country: None (occurrence: None)
  Receive Date: 20110608
  Receipt Date: 20110601
  Transmission Date: 20111010
  Serious: Yes (Other)
  Sender: FDA-Public Use
  Company Number: JP-BAYER-2011-045092

PATIENT
  Age: 77 Year
  Sex: Female
  Weight: 62 kg

DRUGS (7)
  1. LANSOPRAZOLE [Concomitant]
     Dosage: DAILY DOSE 30 MG
     Route: 048
  2. PURSENNID [Concomitant]
     Dosage: DAILY DOSE 24 MG
     Route: 048
  3. ALFAROL [Concomitant]
     Dosage: DAILY DOSE .5 ?G
     Route: 048
  4. LASIX [Concomitant]
     Dosage: DAILY DOSE 40 MG
     Route: 048
  5. ALDACTONE [Concomitant]
     Dosage: DAILY DOSE 100 MG
     Route: 048
  6. NEXAVAR [Suspect]
     Indication: HEPATIC NEOPLASM MALIGNANT
     Dosage: 400 MG, QD
     Route: 048
     Dates: start: 20110509, end: 20110525
  7. URSO 250 [Concomitant]
     Dosage: DAILY DOSE 600 MG
     Route: 048

REACTIONS (5)
  - DECREASED APPETITE [None]
  - WEIGHT DECREASED [None]
  - CEREBRAL HAEMORRHAGE [None]
  - ABASIA [None]
  - DIARRHOEA [None]
